FAERS Safety Report 20322337 (Version 1)
Quarter: 2022Q1

REPORT INFORMATION
  Report Type: Spontaneous
  Country: US (occurrence: US)
  Receive Date: 20220111
  Receipt Date: 20220111
  Transmission Date: 20220424
  Serious: No
  Sender: FDA-Public Use
  Company Number: US-ABBVIE-21K-163-4025312-00

PATIENT
  Sex: Male
  Weight: 105.33 kg

DRUGS (3)
  1. DUOPA [Suspect]
     Active Substance: CARBIDOPA\LEVODOPA
     Indication: Product used for unknown indication
     Route: 050
     Dates: start: 202107
  2. DUOPA [Suspect]
     Active Substance: CARBIDOPA\LEVODOPA
  3. COVID-19 VACCINE [Concomitant]
     Indication: Product used for unknown indication

REACTIONS (6)
  - Parkinson^s disease [Unknown]
  - Gait inability [Unknown]
  - Irritability [Unknown]
  - Medical device site injury [Unknown]
  - Medical device discomfort [Unknown]
  - Device difficult to use [Unknown]

NARRATIVE: CASE EVENT DATE: 20210101
